FAERS Safety Report 14212387 (Version 1)
Quarter: 2017Q4

REPORT INFORMATION
  Report Type: Spontaneous
  Country: US (occurrence: None)
  Receive Date: 20171121
  Receipt Date: 20171121
  Transmission Date: 20180321
  Serious: Yes (Other)
  Sender: FDA-Public Use
  Company Number: None

PATIENT
  Age: 68 Year
  Sex: Female

DRUGS (6)
  1. CAPECITABINE MYLAN [Suspect]
     Active Substance: CAPECITABINE
     Indication: CHOLANGIOCARCINOMA
     Dosage: FOUR 500MG TABS TWICE DAILY ORALLY
     Route: 048
     Dates: start: 20171019
  2. XYZAL [Concomitant]
     Active Substance: LEVOCETIRIZINE DIHYDROCHLORIDE
  3. VYTORIN [Concomitant]
     Active Substance: EZETIMIBE\SIMVASTATIN
  4. METFORMIN [Concomitant]
     Active Substance: METFORMIN HYDROCHLORIDE
  5. CAPECITABINE MYLAN [Suspect]
     Active Substance: CAPECITABINE
     Indication: OSTEOPOROSIS
     Dosage: FOUR 500MG TABS TWICE DAILY ORALLY
     Route: 048
     Dates: start: 20171019
  6. ATENOLOL. [Concomitant]
     Active Substance: ATENOLOL

REACTIONS (8)
  - Vomiting [None]
  - Stomatitis [None]
  - Nausea [None]
  - Noninfective gingivitis [None]
  - Eating disorder [None]
  - Cheilitis [None]
  - Fatigue [None]
  - Therapy change [None]

NARRATIVE: CASE EVENT DATE: 2017
